FAERS Safety Report 12369399 (Version 5)
Quarter: 2017Q4

REPORT INFORMATION
  Report Type: Spontaneous
  Country: GB (occurrence: GB)
  Receive Date: 20160513
  Receipt Date: 20171220
  Transmission Date: 20180320
  Serious: Yes (Other)
  Sender: FDA-Public Use
  Company Number: GB-AMGEN-GBRSP2016060918

PATIENT
  Age: 62 Year
  Sex: Female

DRUGS (1)
  1. ENBREL [Suspect]
     Active Substance: ETANERCEPT
     Indication: PRODUCT USED FOR UNKNOWN INDICATION
     Dosage: 50 MG, WEEKLY
     Route: 058

REACTIONS (6)
  - Musculoskeletal pain [Unknown]
  - Condition aggravated [Unknown]
  - Lower respiratory tract infection [Not Recovered/Not Resolved]
  - Contusion [Unknown]
  - Cough [Not Recovered/Not Resolved]
  - Vaginal haemorrhage [Unknown]
